FAERS Safety Report 5410436-8 (Version None)
Quarter: 2007Q3

REPORT INFORMATION
  Report Type: 
  Country: None (occurrence: None)
  Receive Date: 20070810
  Receipt Date: 20070803
  Transmission Date: 20080115
  Serious: Yes (Life-Threatening)
  Sender: FDA-Public Use
  Company Number: PL-JNJFOC-20051200841

PATIENT
  Sex: Male
  Weight: 91 kg

DRUGS (5)
  1. PLACEBO [Suspect]
     Route: 042
  2. PLACEBO [Suspect]
     Indication: ACUTE MYOCARDIAL INFARCTION
     Route: 042
  3. PLACEBO [Suspect]
     Route: 042
  4. ABCIXIMAB [Suspect]
     Route: 042
  5. ABCIXIMAB [Suspect]
     Indication: ACUTE MYOCARDIAL INFARCTION
     Route: 042

REACTIONS (1)
  - VENTRICULAR FIBRILLATION [None]
